FAERS Safety Report 16618903 (Version 1)
Quarter: 2019Q3

REPORT INFORMATION
  Report Type: Spontaneous
  Country: DE (occurrence: DE)
  Receive Date: 20190723
  Receipt Date: 20190723
  Transmission Date: 20191004
  Serious: Yes (Death, Hospitalization, Congenital Anomaly)
  Sender: FDA-Public Use
  Company Number: PHHY2019DE168376

PATIENT
  Age: 49 Year
  Sex: Female
  Weight: 77 kg

DRUGS (22)
  1. PACLITAXEL. [Suspect]
     Active Substance: PACLITAXEL
     Indication: OVARIAN CANCER
     Dosage: 322 MG, UNK
     Route: 042
     Dates: start: 20131216, end: 20131216
  2. CARBOPLATIN. [Suspect]
     Active Substance: CARBOPLATIN
     Dosage: 403 MG, UNK
     Route: 042
     Dates: start: 20140128, end: 20140128
  3. XERISTAR [Concomitant]
     Active Substance: DULOXETINE HYDROCHLORIDE
     Indication: DEPRESSION
     Dosage: 30 MG, UNK
     Route: 048
  4. PACLITAXEL. [Suspect]
     Active Substance: PACLITAXEL
     Dosage: 318.5 MG, UNK
     Route: 042
     Dates: start: 20140218, end: 20140218
  5. PACLITAXEL. [Suspect]
     Active Substance: PACLITAXEL
     Dosage: 318.5 MG, UNK
     Route: 042
     Dates: start: 20140311, end: 20140311
  6. PACLITAXEL. [Suspect]
     Active Substance: PACLITAXEL
     Dosage: 315 MG, UNK
     Route: 042
     Dates: start: 20140401, end: 20140401
  7. CARBOPLATIN. [Suspect]
     Active Substance: CARBOPLATIN
     Dosage: 456 MG, UNK
     Route: 042
     Dates: start: 20140218, end: 20140218
  8. CANDESARTAN. [Concomitant]
     Active Substance: CANDESARTAN
     Indication: HYPERTENSION
     Dosage: 10 MG, UNK
     Route: 048
     Dates: start: 20140923
  9. CARBOPLATIN. [Suspect]
     Active Substance: CARBOPLATIN
     Dosage: 362 MG, UNK
     Route: 042
     Dates: start: 20131216, end: 20131216
  10. BEVACIZUMAB. [Suspect]
     Active Substance: BEVACIZUMAB
     Indication: OVARIAN CANCER
     Dosage: 1140 MG, UNK
     Route: 042
  11. BEVACIZUMAB. [Suspect]
     Active Substance: BEVACIZUMAB
     Dosage: 1140 MG, UNK
     Route: 042
  12. AMLODIPIN [Concomitant]
     Active Substance: AMLODIPINE BESYLATE
     Indication: HYPERTENSION
     Dosage: 1 OT, QD
     Route: 048
  13. PACLITAXEL. [Suspect]
     Active Substance: PACLITAXEL
     Dosage: 318.5 MG, UNK
     Route: 042
     Dates: start: 20140107, end: 20140311
  14. CARBOPLATIN. [Suspect]
     Active Substance: CARBOPLATIN
     Dosage: 400 MG, UNK
     Route: 042
     Dates: start: 20140107, end: 20140107
  15. BEVACIZUMAB. [Suspect]
     Active Substance: BEVACIZUMAB
     Dosage: 1125 MG, UNK (RE-INTRODUCED)
     Route: 042
  16. CARBOPLATIN. [Suspect]
     Active Substance: CARBOPLATIN
     Indication: OVARIAN CANCER
     Dosage: 538 MG, UNK
     Route: 042
  17. CARBOPLATIN. [Suspect]
     Active Substance: CARBOPLATIN
     Dosage: 460 MG, UNK
     Route: 042
     Dates: start: 20140311, end: 20140311
  18. PACLITAXEL. [Suspect]
     Active Substance: PACLITAXEL
     Dosage: 318.5 MG, UNK
     Route: 042
     Dates: start: 20140128, end: 20140128
  19. BEVACIZUMAB. [Suspect]
     Active Substance: BEVACIZUMAB
     Dosage: 1155 MG, UNK (TEMPORARILY INTERRUPTED ON AN UNSPECIFIED DATE)
     Route: 042
  20. BISOPROLOL [Concomitant]
     Active Substance: BISOPROLOL
     Indication: HYPERTENSION
     Dosage: 1 OT, QD
     Route: 048
  21. PREDNISOLONE. [Concomitant]
     Active Substance: PREDNISOLONE
     Indication: SYSTEMIC LUPUS ERYTHEMATOSUS
     Dosage: 5 MG, UNK
     Route: 048
  22. BEVACIZUMAB. [Suspect]
     Active Substance: BEVACIZUMAB
     Dosage: 1140 MG, UNK
     Route: 042

REACTIONS (3)
  - Incarcerated incisional hernia [Recovered/Resolved]
  - Death [Fatal]
  - Ileus [Recovered/Resolved]

NARRATIVE: CASE EVENT DATE: 20140422
